FAERS Safety Report 7182772 (Version 3)
Quarter: 2014Q1

REPORT INFORMATION
  Report Type: Report from Study
  Country: IT (occurrence: IT)
  Receive Date: 20091120
  Receipt Date: 20140212
  Transmission Date: 20141002
  Serious: Yes (Hospitalization)
  Sender: FDA-Public Use
  Company Number: PHHY2009IT48810

PATIENT
  Age: 65 Year
  Sex: Male

DRUGS (7)
  1. CERTICAN [Suspect]
     Indication: RENAL TRANSPLANT
     Dosage: 0.75 MG, BID
     Route: 048
  2. CERTICAN [Suspect]
     Indication: IMMUNOSUPPRESSION
     Dosage: 1.25 MG, DAILY
     Route: 048
  3. CERTICAN [Suspect]
     Dosage: 0.5 MG, UNK
     Route: 048
     Dates: start: 20080423, end: 20120724
  4. NEORAL [Suspect]
     Indication: RENAL TRANSPLANT
     Dosage: 50 MG, BID
     Route: 048
     Dates: start: 20080724
  5. TENORMIN [Concomitant]
     Indication: HYPERTENSION
     Dosage: 50 MG, UNK
     Route: 048
     Dates: start: 20081027
  6. CARDURA [Concomitant]
     Indication: HYPERTENSION
     Dosage: 4 MG, UNK
     Route: 048
     Dates: start: 20091112
  7. NORVASC                                 /DEN/ [Concomitant]
     Indication: HYPERTENSION
     Dosage: 10 MG, UNK
     Route: 048
     Dates: start: 20091112

REACTIONS (3)
  - Kidney transplant rejection [Recovered/Resolved]
  - Blood creatinine increased [Recovered/Resolved]
  - Azotaemia [Recovered/Resolved]
